FAERS Safety Report 16659466 (Version 1)
Quarter: 2019Q3

REPORT INFORMATION
  Report Type: Spontaneous
  Country: JP (occurrence: JP)
  Receive Date: 20190802
  Receipt Date: 20190802
  Transmission Date: 20191004
  Serious: Yes (Other)
  Sender: FDA-Public Use
  Company Number: JP-ASTELLAS-2019JP016283

PATIENT
  Age: 1 Year
  Sex: Female

DRUGS (4)
  1. PROGRAF [Suspect]
     Active Substance: TACROLIMUS\TACROLIMUS ANHYDROUS
     Indication: BONE MARROW TRANSPLANT REJECTION
     Dosage: UNK UNK, UNKNOWN FREQ.
     Route: 065
  2. METHOTREXATE. [Suspect]
     Active Substance: METHOTREXATE
     Indication: PROPHYLAXIS AGAINST GRAFT VERSUS HOST DISEASE
     Dosage: UNK UNK, UNKNOWN FREQ.
     Route: 065
  3. PREDNISOLONE. [Suspect]
     Active Substance: PREDNISOLONE
     Indication: PROPHYLAXIS AGAINST GRAFT VERSUS HOST DISEASE
     Dosage: UNK UNK, UNKNOWN FREQ.
     Route: 065
  4. PROGRAF [Suspect]
     Active Substance: TACROLIMUS\TACROLIMUS ANHYDROUS
     Indication: PROPHYLAXIS AGAINST GRAFT VERSUS HOST DISEASE

REACTIONS (4)
  - Pyrexia [Recovered/Resolved]
  - Graft versus host disease in skin [Recovered/Resolved]
  - Blood pressure decreased [Recovered/Resolved]
  - Graft versus host disease in gastrointestinal tract [Recovered/Resolved]
